FAERS Safety Report 17412147 (Version 1)
Quarter: 2020Q1

REPORT INFORMATION
  Report Type: Spontaneous
  Country: US (occurrence: US)
  Receive Date: 20200128
  Receipt Date: 20200128
  Transmission Date: 20200409
  Serious: Yes (Disabling)
  Sender: FDA-Public Use
  Company Number: None

PATIENT
  Age: 82 Year
  Sex: Female
  Weight: 51.71 kg

DRUGS (14)
  1. PRAVASTATIN. [Concomitant]
     Active Substance: PRAVASTATIN
  2. DILTIAZEM. [Concomitant]
     Active Substance: DILTIAZEM
  3. CENTRUM SILVER [Concomitant]
     Active Substance: MINERALS\VITAMINS
  4. MAGNESIUM OXIDE. [Concomitant]
     Active Substance: MAGNESIUM OXIDE
  5. MECLAZINE 25 MG, 25 MG [Concomitant]
     Active Substance: MECLIZINE HYDROCHLORIDE
  6. HYOSCYMINE [Concomitant]
  7. PROLIA [Suspect]
     Active Substance: DENOSUMAB
     Indication: OSTEOPOROSIS
     Dosage: ?          OTHER FREQUENCY:EVERY 6 MONTHS;OTHER ROUTE:INJECTION, DOCTORS OFFICE?
     Dates: start: 20191024
  8. ASPIRIN. [Concomitant]
     Active Substance: ASPIRIN
  9. CALCIUM CITRATE/D3 [Concomitant]
  10. VITAMIN D3 [Concomitant]
     Active Substance: CHOLECALCIFEROL
  11. GAS-X [Concomitant]
     Active Substance: DIMETHICONE
  12. ISOSORBIDE. [Concomitant]
     Active Substance: ISOSORBIDE
  13. LEVOTHYROXINE. [Concomitant]
     Active Substance: LEVOTHYROXINE
  14. VITAMIN B12 [Concomitant]
     Active Substance: CYANOCOBALAMIN

REACTIONS (5)
  - Musculoskeletal pain [None]
  - Myalgia [None]
  - Pain in extremity [None]
  - Muscle spasms [None]
  - Rash [None]

NARRATIVE: CASE EVENT DATE: 20191101
